FAERS Safety Report 6046385-4 (Version None)
Quarter: 2009Q1

REPORT INFORMATION
  Report Type: 
  Country: None (occurrence: None)
  Receive Date: 20090122
  Receipt Date: 20090119
  Transmission Date: 20090719
  Serious: Yes (Hospitalization)
  Sender: FDA-Public Use
  Company Number: US-BIOGENIDEC-2008BI034111

PATIENT
  Age: 43 Year
  Sex: Female
  Weight: 95 kg

DRUGS (3)
  1. AVONEX [Suspect]
     Indication: MULTIPLE SCLEROSIS
     Route: 030
     Dates: start: 20040301, end: 20080101
  2. AVONEX [Suspect]
     Route: 030
     Dates: start: 20080101
  3. IMITREX [Concomitant]
     Indication: MIGRAINE
     Dates: start: 20040101, end: 20040101

REACTIONS (4)
  - BONE OPERATION [None]
  - FATIGUE [None]
  - MIGRAINE [None]
  - POST PROCEDURAL SWELLING [None]
